FAERS Safety Report 19498750 (Version 2)
Quarter: 2021Q4

REPORT INFORMATION
  Report Type: Report from Study
  Country: US (occurrence: US)
  Receive Date: 20210706
  Receipt Date: 20211013
  Transmission Date: 20220304
  Serious: Yes (Hospitalization)
  Sender: FDA-Public Use
  Company Number: NVSC2020US107612

PATIENT
  Age: 69 Year
  Sex: Female
  Weight: 52 kg

DRUGS (10)
  1. KISQALI [Suspect]
     Active Substance: RIBOCICLIB
     Indication: Hormone receptor positive HER2 negative breast cancer
     Dosage: 600 MG
     Route: 048
     Dates: start: 20200305
  2. LETROZOLE [Suspect]
     Active Substance: LETROZOLE
     Indication: Hormone receptor positive HER2 negative breast cancer
     Dosage: 2.5 MG, DAILY
     Route: 048
     Dates: start: 20200305
  3. DOCUSATE [Concomitant]
     Active Substance: DOCUSATE
     Indication: Prophylaxis
     Dosage: UNK
     Route: 065
     Dates: start: 20200420, end: 20200422
  4. ATORVASTATIN [Concomitant]
     Active Substance: ATORVASTATIN
     Indication: Hyperlipidaemia
     Dosage: UNK
     Route: 065
     Dates: start: 20200220
  5. DOCUSATE SODIUM\SENNOSIDE A\SENNOSIDE B [Concomitant]
     Active Substance: DOCUSATE SODIUM\SENNOSIDE A\SENNOSIDE B
     Indication: Prophylaxis
     Dosage: 50 MG TO 8.6 MG
     Route: 065
     Dates: start: 20200420, end: 20200422
  6. LEVOTHYROXINE [Concomitant]
     Active Substance: LEVOTHYROXINE
     Indication: Hypothyroidism
     Dosage: UNK
     Route: 065
     Dates: start: 20100101
  7. MORPHINE [Concomitant]
     Active Substance: MORPHINE
     Indication: Back pain
     Dosage: UNK
     Route: 065
     Dates: start: 20200102
  8. ZOMETA [Concomitant]
     Active Substance: ZOLEDRONIC ACID
     Indication: Hormone receptor positive HER2 negative breast cancer
     Dosage: UNK
     Route: 065
     Dates: start: 20200416
  9. MOTRIN [Concomitant]
     Active Substance: IBUPROFEN
     Indication: Pyrexia
     Dosage: UNK
     Route: 065
     Dates: start: 20200417, end: 20200417
  10. CEFEPIME [Concomitant]
     Active Substance: CEFEPIME HYDROCHLORIDE
     Indication: Infection prophylaxis
     Dosage: UNK
     Route: 065
     Dates: start: 20200420, end: 20200420

REACTIONS (1)
  - Oesophageal candidiasis [Recovered/Resolved]

NARRATIVE: CASE EVENT DATE: 20200421
